FAERS Safety Report 6326892-7 (Version None)
Quarter: 2009Q3

REPORT INFORMATION
  Report Type: 
  Country: None (occurrence: None)
  Receive Date: 20090821
  Receipt Date: 20090811
  Transmission Date: 20100115
  Serious: Yes (Death, Hospitalization)
  Sender: FDA-Public Use
  Company Number: 2009-03330

PATIENT
  Age: 68 Year
  Sex: Female

DRUGS (2)
  1. VELCADE [Suspect]
     Indication: MULTIPLE MYELOMA
     Dosage: 0.7 MG/M2, INTRAVENOUS; 1 MG/M2, INTRAVENOUS
     Route: 042
  2. DEXAMETHASONE [Concomitant]

REACTIONS (4)
  - CARDIAC ENZYMES INCREASED [None]
  - DYSPNOEA [None]
  - METABOLIC ACIDOSIS [None]
  - RESPIRATORY FAILURE [None]
